FAERS Safety Report 19021064 (Version 36)
Quarter: 2024Q4

REPORT INFORMATION
  Report Type: Report from Study
  Country: US (occurrence: US)
  Receive Date: 20210317
  Receipt Date: 20241225
  Transmission Date: 20250115
  Serious: Yes (Hospitalization, Other)
  Sender: TAKEDA
  Company Number: US-SHIRE-US202015150

PATIENT
  Age: 64 Year
  Sex: Female
  Weight: 50 kg

DRUGS (25)
  1. HUMAN IMMUNOGLOBULIN G [Suspect]
     Active Substance: HUMAN IMMUNOGLOBULIN G
     Indication: Primary immunodeficiency syndrome
     Dosage: UNK
  2. HUMAN IMMUNOGLOBULIN G [Suspect]
     Active Substance: HUMAN IMMUNOGLOBULIN G
     Indication: Immunodeficiency common variable
  3. CUVITRU [Suspect]
     Active Substance: HUMAN IMMUNOGLOBULIN G
     Indication: Immunodeficiency common variable
     Dosage: 6 GRAM, 1/WEEK
     Dates: start: 20210603
  4. CUVITRU [Suspect]
     Active Substance: HUMAN IMMUNOGLOBULIN G
     Indication: Primary immunodeficiency syndrome
     Dosage: UNK
  5. PRIVIGEN [Suspect]
     Active Substance: HUMAN IMMUNOGLOBULIN G
     Indication: Primary immunodeficiency syndrome
     Dosage: UNK
  6. HIZENTRA [Suspect]
     Active Substance: HUMAN IMMUNOGLOBULIN G
     Indication: Product used for unknown indication
     Dosage: UNK
  7. CUTAQUIG [Suspect]
     Active Substance: HUMAN IMMUNOGLOBULIN G
     Indication: Primary immunodeficiency syndrome
     Dosage: UNK
  8. CUTAQUIG [Suspect]
     Active Substance: HUMAN IMMUNOGLOBULIN G
     Indication: Immunodeficiency common variable
  9. ACETAMINOPHEN [Concomitant]
     Active Substance: ACETAMINOPHEN
     Dosage: UNK
  10. DIPHENHYDRAMINE [Concomitant]
     Active Substance: DIPHENHYDRAMINE
     Dosage: UNK
  11. LIDOCAINE [Concomitant]
     Active Substance: LIDOCAINE
     Dosage: UNK
  12. EPINEPHRINE [Concomitant]
     Active Substance: EPINEPHRINE
     Dosage: UNK
  13. METOPROLOL SUCCINATE [Concomitant]
     Active Substance: METOPROLOL SUCCINATE
     Dosage: UNK
  14. LISINOPRIL [Concomitant]
     Active Substance: LISINOPRIL
     Dosage: UNK
  15. OMEPRAZOLE\SODIUM BICARBONATE [Concomitant]
     Active Substance: OMEPRAZOLE\SODIUM BICARBONATE
     Dosage: UNK
  16. ESTRADIOL ANTIBIOTICOS [Concomitant]
     Dosage: UNK
  17. FEXOFENADINE HYDROCHLORIDE [Concomitant]
     Active Substance: FEXOFENADINE HYDROCHLORIDE
     Dosage: UNK
  18. CALCIUM PLUS D3 [Concomitant]
     Dosage: UNK
  19. Glucosamine chondroitin msm [Concomitant]
     Dosage: UNK
  20. VITAMIN C [Concomitant]
     Active Substance: ASCORBIC ACID
     Dosage: UNK
  21. VITAMIN B COMPLEX [Concomitant]
     Active Substance: CYANOCOBALAMIN\DEXPANTHENOL\NIACINAMIDE\PYRIDOXINE HYDROCHLORIDE\RIBOFLAVIN 5^-PHOSPHATE SODIUM\THIA
     Dosage: UNK
  22. DIMETHYL SULFONE [Concomitant]
     Active Substance: DIMETHYL SULFONE
     Dosage: UNK
  23. METOPROLOL [Concomitant]
     Active Substance: METOPROLOL
     Dosage: UNK
  24. OMEPRAZOLE SODIUM [Concomitant]
     Active Substance: OMEPRAZOLE SODIUM
     Dosage: UNK
  25. ESTRADIOL [Concomitant]
     Active Substance: ESTRADIOL
     Dosage: UNK

REACTIONS (47)
  - Pneumonia [Unknown]
  - Vein rupture [Not Recovered/Not Resolved]
  - Lymphoma [Unknown]
  - Waldenstrom^s macroglobulinaemia [Unknown]
  - Breast cancer [Unknown]
  - Venous injury [Unknown]
  - Infusion related reaction [Unknown]
  - Uterine prolapse [Unknown]
  - Proctalgia [Unknown]
  - Vaginal cyst [Unknown]
  - Gastrooesophageal reflux disease [Not Recovered/Not Resolved]
  - Weight increased [Unknown]
  - Poor venous access [Unknown]
  - Procedural pain [Unknown]
  - Thyroid mass [Unknown]
  - Pleurisy [Unknown]
  - Gastrointestinal disorder [Unknown]
  - COVID-19 [Recovered/Resolved]
  - Nasopharyngitis [Unknown]
  - Raynaud^s phenomenon [Unknown]
  - Inability to afford medication [Unknown]
  - Insurance issue [Unknown]
  - Inappropriate schedule of product administration [Unknown]
  - Bronchitis [Unknown]
  - Product use issue [Unknown]
  - Hypopnoea [Unknown]
  - Sleep apnoea syndrome [Unknown]
  - Product dose omission issue [Unknown]
  - Infusion site nodule [Unknown]
  - Blood pressure fluctuation [Unknown]
  - Infusion site haemorrhage [Unknown]
  - Infusion site bruising [Unknown]
  - Injection site pain [Unknown]
  - Insomnia [Unknown]
  - Abdominal distension [Unknown]
  - Muscle spasms [Unknown]
  - Back pain [Unknown]
  - Arthralgia [Unknown]
  - Chest pain [Unknown]
  - Blood pressure increased [Unknown]
  - Chest discomfort [Unknown]
  - Pain in extremity [Unknown]
  - Pyrexia [Unknown]
  - Dizziness [Unknown]
  - Headache [Unknown]
  - Nausea [Unknown]
  - Fatigue [Recovering/Resolving]

NARRATIVE: CASE EVENT DATE: 20240123
